FAERS Safety Report 6219960-1 (Version None)
Quarter: 2009Q2

REPORT INFORMATION
  Report Type: 
  Country: None (occurrence: None)
  Receive Date: 20090605
  Receipt Date: 20090527
  Transmission Date: 20091009
  Serious: Yes (Other)
  Sender: FDA-Public Use
  Company Number: 200905IM000225

PATIENT
  Age: 25 Year
  Sex: Female

DRUGS (1)
  1. IMMUKIN [Suspect]
     Indication: IMMUNODEFICIENCY
     Dosage: 8000000 UNITS, 3 TIMES A WEEK

REACTIONS (2)
  - ANTIBODY TEST ABNORMAL [None]
  - MYCOBACTERIAL INFECTION [None]
